FAERS Safety Report 9641778 (Version 3)
Quarter: 2014Q1

REPORT INFORMATION
  Report Type: Report from Study
  Country: BR (occurrence: BR)
  Receive Date: 20131023
  Receipt Date: 20140204
  Transmission Date: 20141002
  Serious: Yes (Hospitalization, Other)
  Sender: FDA-Public Use
  Company Number: BR-ROCHE-1172819

PATIENT
  Sex: Female
  Weight: 79 kg

DRUGS (3)
  1. ACTEMRA [Suspect]
     Indication: RHEUMATOID ARTHRITIS
     Dosage: MOST RECENT INFUSION ON 26/SEP/2013
     Route: 042
     Dates: start: 20120928
  2. PURAN T4 [Concomitant]
  3. PREDNISONE [Concomitant]

REACTIONS (4)
  - Rheumatoid arthritis [Unknown]
  - Influenza [Unknown]
  - Immunodeficiency [Not Recovered/Not Resolved]
  - Rheumatoid arthritis [Recovered/Resolved]
